FAERS Safety Report 9393331 (Version 1)
Quarter: 2013Q3

REPORT INFORMATION
  Report Type: Spontaneous
  Country: US (occurrence: US)
  Receive Date: 20130710
  Receipt Date: 20130710
  Transmission Date: 20140515
  Serious: No
  Sender: FDA-Public Use
  Company Number: US-BAYER-2013-083766

PATIENT
  Age: 70 Year
  Sex: Male

DRUGS (4)
  1. STAXYN (FDT/ODT) [Suspect]
     Indication: ERECTILE DYSFUNCTION
     Dosage: 10 MG, UNK
     Route: 048
     Dates: start: 201304, end: 201306
  2. MAXZIDE [Concomitant]
  3. CARDURA [Concomitant]
  4. CRESTOR [Concomitant]

REACTIONS (3)
  - Headache [Recovered/Resolved]
  - Ear pain [Recovered/Resolved]
  - Ear discomfort [Recovered/Resolved]
